FAERS Safety Report 4733160-3 (Version None)
Quarter: 2005Q3

REPORT INFORMATION
  Report Type: 
  Country: None (occurrence: None)
  Receive Date: 20050721
  Receipt Date: 20050523
  Transmission Date: 20060218
  Serious: No
  Sender: FDA-Public Use
  Company Number: 2005SP000905

PATIENT
  Age: 75 Year
  Sex: Female
  Weight: 65.318 kg

DRUGS (5)
  1. LUNESTA [Suspect]
     Indication: INSOMNIA
     Dosage: 2 MG;HS;ORAL
     Route: 048
     Dates: start: 20050517
  2. ATORVASTATIN CALCIUM [Concomitant]
  3. LOTREL [Concomitant]
  4. IRON [Concomitant]
  5. ALLEGRA [Concomitant]

REACTIONS (1)
  - DYSGEUSIA [None]
